FAERS Safety Report 18524731 (Version 1)
Quarter: 2020Q4

REPORT INFORMATION
  Report Type: Report from Study
  Country: CA (occurrence: CA)
  Receive Date: 20201119
  Receipt Date: 20201119
  Transmission Date: 20210114
  Serious: Yes (Hospitalization, Other)
  Sender: FDA-Public Use
  Company Number: CA-TAKEDA-2020TUS018255

PATIENT
  Age: 78 Year
  Sex: Female

DRUGS (3)
  1. VEDOLIZUMAB [Suspect]
     Active Substance: VEDOLIZUMAB
     Indication: COLITIS ULCERATIVE
     Dosage: 300 MILLIGRAM
     Route: 042
     Dates: start: 20191219
  2. PREDNISONE. [Concomitant]
     Active Substance: PREDNISONE
     Dosage: UNK
  3. VEDOLIZUMAB [Suspect]
     Active Substance: VEDOLIZUMAB
     Dosage: 300 MILLIGRAM
     Route: 042

REACTIONS (10)
  - Wound infection [Recovered/Resolved]
  - Erythema [Not Recovered/Not Resolved]
  - Seizure [Unknown]
  - Oedema peripheral [Unknown]
  - Sepsis [Unknown]
  - Hot flush [Unknown]
  - Pain in extremity [Recovered/Resolved]
  - Pruritus [Unknown]
  - Staphylococcal infection [Unknown]
  - Hyperhidrosis [Unknown]
